FAERS Safety Report 14337995 (Version 3)
Quarter: 2018Q3

REPORT INFORMATION
  Report Type: Spontaneous
  Country: US (occurrence: US)
  Receive Date: 20171229
  Receipt Date: 20180701
  Transmission Date: 20181010
  Serious: Yes (Hospitalization)
  Sender: FDA-Public Use
  Company Number: US-BIOGEN-2017BI00502262

PATIENT
  Age: 32 Year
  Sex: Female
  Weight: 97.16 kg

DRUGS (2)
  1. TYSABRI [Suspect]
     Active Substance: NATALIZUMAB
     Route: 065
     Dates: start: 2010, end: 20180309
  2. TYSABRI [Suspect]
     Active Substance: NATALIZUMAB
     Indication: MULTIPLE SCLEROSIS
     Dosage: INFUSED OVER 1 HOUR
     Route: 042
     Dates: start: 20100729, end: 201710

REACTIONS (8)
  - Colonoscopy [Unknown]
  - Syncope [Unknown]
  - Hand fracture [Unknown]
  - Bone contusion [Unknown]
  - Concussion [Unknown]
  - Biopsy cervix [Unknown]
  - Fall [Recovered/Resolved]
  - Hidradenitis [Unknown]

NARRATIVE: CASE EVENT DATE: 201408
